FAERS Safety Report 8190723-3 (Version None)
Quarter: 2012Q1

REPORT INFORMATION
  Report Type: 
  Country: None (occurrence: None)
  Receive Date: 20120307
  Receipt Date: 20120227
  Transmission Date: 20120608
  Serious: Yes (Hospitalization)
  Sender: FDA-Public Use
  Company Number: IL-ROCHE-1040108

PATIENT
  Age: 76 Year
  Sex: Male

DRUGS (11)
  1. VEMURAFENIB [Suspect]
     Dosage: 5 TABS DAILY
     Dates: start: 20120131
  2. VEMURAFENIB [Suspect]
     Dosage: 4 TABS DAILY.
     Dates: start: 20120202, end: 20120207
  3. VEMURAFENIB [Suspect]
     Indication: MALIGNANT MELANOMA
     Route: 048
     Dates: start: 20110713
  4. SIMVASTATIN [Concomitant]
     Dates: start: 20060101
  5. PREDNISONE TAB [Concomitant]
     Dates: start: 20110726, end: 20110731
  6. ASPIRIN [Concomitant]
     Dates: start: 20100307
  7. GLUCOPHAGE [Concomitant]
     Dates: start: 20081215
  8. RAFAPEN [Concomitant]
     Dates: start: 19960115
  9. AMLODIPINE [Concomitant]
     Dates: start: 19960101
  10. RAMIPRIL [Concomitant]
     Dates: start: 20100304
  11. AMILORIDE HYDROCHLORIDE [Concomitant]
     Dates: start: 20060615

REACTIONS (2)
  - CONFUSIONAL STATE [None]
  - RASH [None]
